FAERS Safety Report 24529265 (Version 1)
Quarter: 2024Q4

REPORT INFORMATION
  Report Type: Spontaneous
  Country: US (occurrence: None)
  Receive Date: 20241020
  Receipt Date: 20241020
  Transmission Date: 20250115
  Serious: No
  Sender: Public
  Company Number: None

PATIENT
  Age: 45 Year
  Sex: Male
  Weight: 99 kg

DRUGS (12)
  1. OXYCONTIN [Suspect]
     Active Substance: OXYCODONE HYDROCHLORIDE
     Indication: Procedural pain
     Dosage: OTHER QUANTITY : 1 TABLET(S);?FREQUENCY : AS NEEDED;?
     Route: 048
     Dates: start: 20241003, end: 20241012
  2. Irwin Mens daily vitamin [Concomitant]
  3. NOW [Concomitant]
  4. Quecertin [Concomitant]
  5. GINGKO BILOBA [Concomitant]
  6. BAYER ASPIRIN [Concomitant]
  7. LORATADINE [Concomitant]
  8. IBUPROFEN [Concomitant]
  9. TYLENOL [Concomitant]
  10. MELATONIN [Concomitant]
  11. ORALBIOTIC [Concomitant]
  12. PROBIOTICS NOS [Concomitant]
     Active Substance: PROBIOTICS NOS

REACTIONS (2)
  - Tinnitus [None]
  - Constipation [None]

NARRATIVE: CASE EVENT DATE: 20241003
